FAERS Safety Report 6268757-5 (Version None)
Quarter: 2009Q3

REPORT INFORMATION
  Report Type: 
  Country: None (occurrence: None)
  Receive Date: 20090713
  Receipt Date: 20090713
  Transmission Date: 20100115
  Serious: Yes (Life-Threatening, Hospitalization)
  Sender: FDA-Public Use
  Company Number: None

PATIENT
  Age: 58 Year
  Sex: Female
  Weight: 79.3795 kg

DRUGS (1)
  1. CIPROFLOXACIN 500MG TAB RX#6716560 [Suspect]
     Indication: COLITIS
     Dosage: 500MG TWICE DAILY PO
     Route: 048
     Dates: start: 20080904, end: 20080918

REACTIONS (1)
  - THROMBOSIS [None]
